FAERS Safety Report 4875554-1 (Version None)
Quarter: 2006Q1

REPORT INFORMATION
  Report Type: 
  Country: None (occurrence: None)
  Receive Date: 20060105
  Receipt Date: 20051222
  Transmission Date: 20060701
  Serious: Yes (Hospitalization)
  Sender: FDA-Public Use
  Company Number: S05-IRL-05766-01

PATIENT
  Age: 61 Year
  Sex: Male

DRUGS (2)
  1. LEXAPRO [Suspect]
     Indication: DEPRESSION
     Dosage: 20 MG QD PO
     Route: 048
  2. MOBIC [Suspect]
     Indication: PERIARTHRITIS
     Dosage: 15 MG PO
     Route: 048

REACTIONS (1)
  - MELAENA [None]
